FAERS Safety Report 8119975-2 (Version None)
Quarter: 2012Q1

REPORT INFORMATION
  Report Type: 
  Country: None (occurrence: None)
  Receive Date: 20120203
  Receipt Date: 20120120
  Transmission Date: 20120608
  Serious: Yes (Other)
  Sender: FDA-Public Use
  Company Number: JPI-P-019289

PATIENT
  Age: 40 Year
  Sex: Female

DRUGS (3)
  1. XYREM [Suspect]
     Indication: NARCOLEPSY
     Dosage: 4.5; 9 GM (2.25 GM, 2 IN 1 D), ORAL
     Route: 048
     Dates: start: 20061208, end: 20120109
  2. XYREM [Suspect]
     Indication: NARCOLEPSY
     Dosage: 4.5; 9 GM (2.25 GM, 2 IN 1 D), ORAL
     Route: 048
     Dates: start: 20120101
  3. XYREM [Suspect]
     Indication: NARCOLEPSY
     Dosage: 4.5; 9 GM (2.25 GM, 2 IN 1 D), ORAL
     Route: 048
     Dates: start: 20030916

REACTIONS (3)
  - CHOLECYSTECTOMY [None]
  - CHOLELITHIASIS [None]
  - GASTROOESOPHAGEAL REFLUX DISEASE [None]
